FAERS Safety Report 4863189-6 (Version None)
Quarter: 2005Q4

REPORT INFORMATION
  Report Type: 
  Country: None (occurrence: None)
  Receive Date: 20051201
  Receipt Date: 20050725
  Transmission Date: 20060501
  Serious: No
  Sender: FDA-Public Use
  Company Number: 2005PV000522

PATIENT
  Age: 57 Year
  Sex: Female
  Weight: 161.9341 kg

DRUGS (9)
  1. BYETTA [Suspect]
     Indication: DIABETES MELLITUS NON-INSULIN-DEPENDENT
     Dosage: 5 UG;BID;SC
     Route: 058
     Dates: start: 20050719
  2. ALTACE [Concomitant]
  3. HYDROCHLOROTHIAZIDE [Concomitant]
  4. METFORMIN HCL [Concomitant]
  5. GLYBURIDE [Concomitant]
  6. AZMACORT [Concomitant]
  7. XALATAN [Concomitant]
  8. IBUPROFEN [Concomitant]
  9. ALBUTEROL SULFATE AUTOHALER [Concomitant]

REACTIONS (5)
  - BREAST PAIN [None]
  - HEADACHE [None]
  - METRORRHAGIA [None]
  - MYALGIA [None]
  - NAUSEA [None]
